FAERS Safety Report 12851216 (Version 1)
Quarter: 2016Q4

REPORT INFORMATION
  Report Type: Spontaneous
  Country: RU (occurrence: RU)
  Receive Date: 20161015
  Receipt Date: 20161015
  Transmission Date: 20170207
  Serious: Yes (Other)
  Sender: FDA-Public Use
  Company Number: RU-ASTRAZENECA-2016SF08215

PATIENT
  Age: 61 Year
  Sex: Female
  Weight: 85 kg

DRUGS (6)
  1. LORISTA [Concomitant]
     Active Substance: LOSARTAN POTASSIUM
  2. BRILINTA [Suspect]
     Active Substance: TICAGRELOR
     Indication: MYOCARDIAL INFARCTION
     Route: 048
     Dates: start: 20160505
  3. BETALOC ZOK [Concomitant]
     Active Substance: METOPROLOL SUCCINATE
  4. ATORVASTATIN [Concomitant]
     Active Substance: ATORVASTATIN
  5. SULFASALAZINE. [Concomitant]
     Active Substance: SULFASALAZINE
  6. PREDNISOLONE. [Concomitant]
     Active Substance: PREDNISOLONE

REACTIONS (1)
  - Lower limb fracture [Not Recovered/Not Resolved]

NARRATIVE: CASE EVENT DATE: 20160906
